FAERS Safety Report 8830473 (Version 1)
Quarter: 2012Q4

REPORT INFORMATION
  Report Type: 
  Country: FR (occurrence: FR)
  Receive Date: 20121009
  Receipt Date: 20121009
  Transmission Date: 20130627
  Serious: Yes (Hospitalization, Other)
  Sender: FDA-Public Use
  Company Number: FR-ELI_LILLY_AND_COMPANY-FR201209007187

PATIENT
  Age: 91 Year
  Sex: Female

DRUGS (1)
  1. CYMBALTA [Suspect]
     Dosage: 30 mg, qd
     Dates: end: 20120914

REACTIONS (3)
  - Hyponatraemia [Recovered/Resolved]
  - Dyspnoea [Unknown]
  - Inappropriate antidiuretic hormone secretion [Recovered/Resolved]
